FAERS Safety Report 5864179-7 (Version None)
Quarter: 2008Q3

REPORT INFORMATION
  Report Type: 
  Country: None (occurrence: None)
  Receive Date: 20080829
  Receipt Date: 20080821
  Transmission Date: 20090109
  Serious: Yes (Hospitalization)
  Sender: FDA-Public Use
  Company Number: NL-ROCHE-582074

PATIENT
  Sex: Male

DRUGS (2)
  1. XELODA [Suspect]
     Route: 048
     Dates: start: 20080101
  2. AVASTIN [Suspect]
     Route: 042
     Dates: start: 20080101

REACTIONS (2)
  - PANCREATITIS [None]
  - THROMBOSIS [None]
